FAERS Safety Report 5159146-5 (Version None)
Quarter: 2006Q4

REPORT INFORMATION
  Report Type: 
  Country: None (occurrence: None)
  Receive Date: 20061120
  Receipt Date: 20061106
  Transmission Date: 20070319
  Serious: Yes (Death, Other)
  Sender: FDA-Public Use
  Company Number: 2006BL006308

PATIENT
  Age: 58 Year
  Sex: Female
  Weight: 66 kg

DRUGS (5)
  1. DEXAMETHASONE [Suspect]
     Indication: METASTASIS
     Dosage: 4 MILLIGRAMS; ORAL
     Route: 048
     Dates: start: 20060301
  2. OMEPRAZOLE [Concomitant]
  3. ACETAMINOPHEN [Concomitant]
  4. SERTRALINE [Concomitant]
  5. VITAMIN B COMPLEX CAP [Concomitant]

REACTIONS (2)
  - DIABETES MELLITUS [None]
  - DISEASE PROGRESSION [None]
